FAERS Safety Report 15681935 (Version 1)
Quarter: 2018Q4

REPORT INFORMATION
  Report Type: Spontaneous
  Country: US (occurrence: US)
  Receive Date: 20181203
  Receipt Date: 20181203
  Transmission Date: 20190205
  Serious: Yes (Hospitalization)
  Sender: FDA-Public Use
  Company Number: None

PATIENT
  Sex: Male

DRUGS (7)
  1. FOLIC ACID. [Concomitant]
     Active Substance: FOLIC ACID
  2. OXYCODONE [Concomitant]
     Active Substance: OXYCODONE
  3. POTASSIUM [Concomitant]
     Active Substance: POTASSIUM
  4. LETAIRIS [Concomitant]
     Active Substance: AMBRISENTAN
  5. JADENU [Suspect]
     Active Substance: DEFERASIROX
     Indication: SICKLE CELL DISEASE
     Route: 048
     Dates: start: 20160528
  6. MORPHINE [Concomitant]
     Active Substance: MORPHINE
  7. LASIX [Concomitant]
     Active Substance: FUROSEMIDE

REACTIONS (1)
  - Hospitalisation [None]
